FAERS Safety Report 9261568 (Version 2)
Quarter: 2013Q4

REPORT INFORMATION
  Report Type: Spontaneous
  Country: JP (occurrence: JP)
  Receive Date: 20130429
  Receipt Date: 20131001
  Transmission Date: 20140711
  Serious: Yes (Other)
  Sender: FDA-Public Use
  Company Number: JP-PFIZER INC-2013127138

PATIENT
  Age: 75 Year
  Sex: Male

DRUGS (1)
  1. SOLANAX [Suspect]
     Dosage: 0.8 MG, 2X/DAY
     Route: 048
     Dates: start: 20130412, end: 20130417

REACTIONS (3)
  - Coordination abnormal [Recovering/Resolving]
  - Fall [Recovering/Resolving]
  - Contusion [Recovering/Resolving]
